FAERS Safety Report 14331425 (Version 1)
Quarter: 2017Q4

REPORT INFORMATION
  Report Type: Spontaneous
  Country: FR (occurrence: FR)
  Receive Date: 20171228
  Receipt Date: 20171228
  Transmission Date: 20180321
  Serious: Yes (Hospitalization, Other)
  Sender: FDA-Public Use
  Company Number: FR-CONCORDIA PHARMACEUTICALS INC.-E2B_00009120

PATIENT
  Age: 88 Year
  Sex: Female
  Weight: 55 kg

DRUGS (5)
  1. LANOXIN [Suspect]
     Active Substance: DIGOXIN
     Indication: ATRIAL FIBRILLATION
     Dosage: 1/2 AN AMPOULE
     Route: 042
     Dates: start: 20170110, end: 20170110
  2. LANOXIN [Suspect]
     Active Substance: DIGOXIN
     Indication: CONDUCTION DISORDER
     Route: 048
     Dates: start: 20170111, end: 20170126
  3. ELIQUIS [Suspect]
     Active Substance: APIXABAN
     Indication: ATRIAL FIBRILLATION
     Route: 048
     Dates: start: 20170117
  4. LANOXIN [Suspect]
     Active Substance: DIGOXIN
     Dosage: 1/2 AN AMPOULE
     Route: 042
     Dates: start: 20170108, end: 20170108
  5. CORDARONE [Suspect]
     Active Substance: AMIODARONE HYDROCHLORIDE
     Indication: ATRIAL FIBRILLATION
     Route: 048
     Dates: end: 20170111

REACTIONS (4)
  - Drug interaction [Unknown]
  - Cardiac failure [Unknown]
  - Overdose [Recovered/Resolved]
  - Tachyarrhythmia [Unknown]

NARRATIVE: CASE EVENT DATE: 20170124
